FAERS Safety Report 16995773 (Version 1)
Quarter: 2019Q4

REPORT INFORMATION
  Report Type: Spontaneous
  Country: FR (occurrence: FR)
  Receive Date: 20191105
  Receipt Date: 20191105
  Transmission Date: 20200122
  Serious: Yes (Other)
  Sender: FDA-Public Use
  Company Number: FR-BRACCO-2019FR05532

PATIENT
  Age: 57 Year
  Sex: Female

DRUGS (2)
  1. GLUCAGEN /00157801/ [Suspect]
     Active Substance: GLUCAGON HYDROCHLORIDE
     Indication: PRODUCT USED FOR UNKNOWN INDICATION
     Dosage: UNK UNK, SINGLE
     Route: 030
     Dates: start: 20191028, end: 20191028
  2. PROHANCE [Suspect]
     Active Substance: GADOTERIDOL
     Indication: MAGNETIC RESONANCE IMAGING ABDOMINAL
     Dosage: 10 ML, SINGLE
     Dates: start: 20191028, end: 20191028

REACTIONS (1)
  - Drug intolerance [Unknown]

NARRATIVE: CASE EVENT DATE: 20191028
